FAERS Safety Report 6775273-0 (Version None)
Quarter: 2010Q2

REPORT INFORMATION
  Report Type: 
  Country: None (occurrence: None)
  Receive Date: 20100617
  Receipt Date: 20100609
  Transmission Date: 20101027
  Serious: Yes (Hospitalization)
  Sender: FDA-Public Use
  Company Number: GXKR2010US06359

PATIENT
  Age: 89 Year
  Sex: Male

DRUGS (4)
  1. AZITHROMYCIN (NGX) [Suspect]
     Route: 065
  2. PIPERACILLIN+TAZOBACTAM (NGX) [Suspect]
     Route: 065
  3. VANCOMYCIN (NGX) [Suspect]
     Route: 065
  4. METRONIDAZOLE [Suspect]
     Route: 065

REACTIONS (10)
  - ABDOMINAL PAIN [None]
  - ACUTE GENERALISED EXANTHEMATOUS PUSTULOSIS [None]
  - BLISTER [None]
  - BLOOD BILIRUBIN INCREASED [None]
  - LEUKOCYTOSIS [None]
  - NEUTROPHILIA [None]
  - OEDEMA PERIPHERAL [None]
  - RASH MORBILLIFORM [None]
  - RASH PUSTULAR [None]
  - WOUND TREATMENT [None]
